FAERS Safety Report 5817047-0 (Version None)
Quarter: 2008Q3

REPORT INFORMATION
  Report Type: 
  Country: None (occurrence: None)
  Receive Date: 20080722
  Receipt Date: 20080714
  Transmission Date: 20090109
  Serious: Yes (Other)
  Sender: FDA-Public Use
  Company Number: US-BAYER-200822726NA

PATIENT
  Age: 27 Year
  Sex: Female
  Weight: 54 kg

DRUGS (2)
  1. MIRENA [Suspect]
     Indication: CONTRACEPTION
     Route: 015
     Dates: start: 20080501, end: 20080509
  2. MIRENA [Suspect]
     Route: 015
     Dates: start: 20080630

REACTIONS (2)
  - UTERINE PAIN [None]
  - UTERINE RUPTURE [None]
